FAERS Safety Report 8624408-3 (Version None)
Quarter: 2012Q3

REPORT INFORMATION
  Report Type: 
  Country: None (occurrence: None)
  Receive Date: 20120827
  Receipt Date: 20120820
  Transmission Date: 20120928
  Serious: Yes (Hospitalization, Other)
  Sender: FDA-Public Use
  Company Number: PHHY2012BR051624

PATIENT
  Sex: Male

DRUGS (10)
  1. FUROSEMIDE [Suspect]
     Indication: SWELLING
     Dosage: 2 DF (TWO TABLETS IN MORNING AND TWO TABLETS IN AFTERNOON), BID
     Route: 048
  2. ALLOPURINOL [Concomitant]
     Indication: BLOOD URIC ACID
     Dosage: 0.5 DF, QD (HALF A TABLET AT NIGHT)
     Route: 048
  3. DIOVAN [Suspect]
     Dosage: 1 DF (320 MG), DAILY
     Route: 048
  4. FUROSEMIDE [Suspect]
     Dosage: 1 DF (1 TABLET IN THE MORNING AND 1 TABLET IN THE AFTERNOON), BID
     Route: 048
  5. ATORVASTATIN [Concomitant]
     Indication: BLOOD TRIGLYCERIDES ABNORMAL
  6. INSULIN [Concomitant]
     Indication: DIABETES MELLITUS
     Dosage: 1 DF, (1 APPLICATION OF 28 CM3 IN THE MORNING AND 1 APPLICATION OF 12 CM3 IN THE AFTERNOON)
  7. ATORVASTATIN [Concomitant]
     Indication: BLOOD CHOLESTEROL ABNORMAL
     Dosage: 1 DF AT NIGHT
     Route: 048
  8. CARVEDILOL [Concomitant]
     Indication: CARDIAC DISORDER
     Dosage: 2 DF, DAILY
     Route: 048
  9. ACETYLSALICYLIC ACID(AAS PROTECTOR) [Concomitant]
     Indication: PROPHYLAXIS
     Dosage: 1 DF DAILY
     Route: 048
  10. DIOVAN [Suspect]
     Indication: BLOOD PRESSURE
     Dosage: 1 DF (160 MG), DAILY
     Route: 048

REACTIONS (7)
  - NEUROPATHY PERIPHERAL [None]
  - SCROTAL INFECTION [None]
  - DEMENTIA ALZHEIMER'S TYPE [None]
  - RENAL DISORDER [None]
  - ABASIA [None]
  - ANAEMIA [None]
  - HYPERTENSION [None]
